FAERS Safety Report 7011628-7 (Version None)
Quarter: 2010Q3

REPORT INFORMATION
  Report Type: 
  Country: None (occurrence: None)
  Receive Date: 20100923
  Receipt Date: 20090326
  Transmission Date: 20110219
  Serious: No
  Sender: FDA-Public Use
  Company Number: US-WYE-H08735009

PATIENT
  Sex: Female
  Weight: 49.03 kg

DRUGS (1)
  1. PREMARIN [Suspect]
     Indication: VULVOVAGINAL DRYNESS
     Dosage: 1 GRAM
     Route: 067
     Dates: start: 20090322, end: 20090323

REACTIONS (4)
  - ABDOMINAL DISTENSION [None]
  - HOT FLUSH [None]
  - MUSCLE SPASMS [None]
  - NAUSEA [None]
